FAERS Safety Report 6636081-4 (Version None)
Quarter: 2010Q1

REPORT INFORMATION
  Report Type: 
  Country: None (occurrence: None)
  Receive Date: 20100316
  Receipt Date: 20100310
  Transmission Date: 20100710
  Serious: Yes (Life-Threatening, Hospitalization)
  Sender: FDA-Public Use
  Company Number: CHPA2010US04762

PATIENT
  Age: 25 Year
  Sex: Female
  Weight: 72.562 kg

DRUGS (2)
  1. VOLTAREN [Suspect]
     Dosage: UNK, A
     Route: 061
     Dates: start: 20100120, end: 20100302
  2. VOLTAREN [Suspect]
     Dosage: 75 MG, BID
     Route: 048
     Dates: start: 20100120, end: 20100302

REACTIONS (3)
  - AUTOIMMUNE DISORDER [None]
  - HEPATIC FAILURE [None]
  - HEPATOTOXICITY [None]
